FAERS Safety Report 8306047-7 (Version None)
Quarter: 2012Q2

REPORT INFORMATION
  Report Type: 
  Country: None (occurrence: None)
  Receive Date: 20120423
  Receipt Date: 20120411
  Transmission Date: 20120825
  Serious: Yes (Other)
  Sender: FDA-Public Use
  Company Number: US-ROCHE-1058848

PATIENT
  Sex: Female

DRUGS (1)
  1. BONIVA [Suspect]
     Indication: PRODUCT USED FOR UNKNOWN INDICATION

REACTIONS (9)
  - EAR PRURITUS [None]
  - TERMINAL STATE [None]
  - THROAT IRRITATION [None]
  - ABDOMINAL PAIN UPPER [None]
  - MUSCULAR WEAKNESS [None]
  - DRUG ADMINISTRATION ERROR [None]
  - STAPHYLOCOCCAL OSTEOMYELITIS [None]
  - BONE PAIN [None]
  - HEADACHE [None]
